FAERS Safety Report 6057525-5 (Version None)
Quarter: 2009Q1

REPORT INFORMATION
  Report Type: 
  Country: None (occurrence: None)
  Receive Date: 20090129
  Receipt Date: 20090120
  Transmission Date: 20090719
  Serious: Yes (Hospitalization)
  Sender: FDA-Public Use
  Company Number: GB-ROCHE-609569

PATIENT
  Sex: Female
  Weight: 81.7 kg

DRUGS (3)
  1. ORLISTAT [Suspect]
     Indication: OBESITY
     Route: 048
     Dates: start: 20081006
  2. EFFEXOR [Concomitant]
     Indication: BIPOLAR DISORDER
     Dosage: DRUG REPORTED AS EFFEXORXL; DOSAGE: 150 MG EVENING, 75 MG EVENING.
     Route: 048
  3. CHLORPROMAZINE [Concomitant]
     Indication: BIPOLAR DISORDER
     Dosage: DRUG REPORTED AS CLOPROMAZINE; DOSAGE: 25 MG 1X DAY
     Route: 048

REACTIONS (2)
  - JAUNDICE [None]
  - PANCREATITIS [None]
